FAERS Safety Report 17140198 (Version 1)
Quarter: 2019Q4

REPORT INFORMATION
  Report Type: Spontaneous
  Country: DK (occurrence: DK)
  Receive Date: 20191211
  Receipt Date: 20191211
  Transmission Date: 20200122
  Serious: Yes (Hospitalization)
  Sender: FDA-Public Use
  Company Number: NVSC2019DK059056

PATIENT
  Age: 56 Year
  Sex: Male
  Weight: 80 kg

DRUGS (3)
  1. ALNOK [Concomitant]
     Active Substance: CETIRIZINE HYDROCHLORIDE
     Indication: SEASONAL ALLERGY
     Dosage: 10 MG, QD
     Route: 048
     Dates: start: 20140527
  2. MOMETASONE SANDOZ [Suspect]
     Active Substance: MOMETASONE
     Indication: SINUSITIS
     Dosage: 100 UG, QD
     Route: 045
     Dates: start: 20190402, end: 20190930
  3. CENTYL MED KALIUMKLORID [Concomitant]
     Active Substance: BENDROFLUMETHIAZIDE\POTASSIUM CHLORIDE
     Indication: HYPERTENSION
     Dosage: 1 DF, QD
     Route: 048
     Dates: start: 20140527

REACTIONS (4)
  - Blood triglycerides increased [Unknown]
  - Hepatic enzyme increased [Unknown]
  - Hyper HDL cholesterolaemia [Unknown]
  - Blood glucose increased [Unknown]

NARRATIVE: CASE EVENT DATE: 2019
